FAERS Safety Report 4611371-5 (Version None)
Quarter: 2005Q1

REPORT INFORMATION
  Report Type: 
  Country: None (occurrence: None)
  Receive Date: 20050317
  Receipt Date: 20050304
  Transmission Date: 20050727
  Serious: Yes (Hospitalization, Other)
  Sender: FDA-Public Use
  Company Number: PHBS2005JP03327

PATIENT
  Age: 52 Year
  Sex: Female

DRUGS (2)
  1. DIOVAN [Suspect]
     Indication: HYPERTENSION
     Dosage: 80 MG, QD
     Route: 048
     Dates: start: 20041109
  2. PANALDINE [Concomitant]
     Dosage: 100 MG, UNK
     Route: 048
     Dates: start: 20050111

REACTIONS (2)
  - CEREBRAL INFARCTION [None]
  - TREMOR [None]
